FAERS Safety Report 13078698 (Version 1)
Quarter: 2017Q1

REPORT INFORMATION
  Report Type: Other
  Country: US (occurrence: US)
  Receive Date: 20170102
  Receipt Date: 20170102
  Transmission Date: 20170428
  Serious: Yes (Other)
  Sender: FDA-Public Use
  Company Number: US-B. BRAUN MEDICAL INC.-1061434

PATIENT
  Age: 49 Year
  Sex: Male

DRUGS (5)
  1. LOW-DOSE HALIPERIDOL [Concomitant]
  2. SODIUM CHLORIDE. [Suspect]
     Active Substance: SODIUM CHLORIDE
     Indication: HYPONATRAEMIA
     Route: 042
  3. VALPROATE [Concomitant]
     Active Substance: VALPROIC ACID
  4. ZIPRASIDONE. [Concomitant]
     Active Substance: ZIPRASIDONE
  5. CLOZAPINE. [Concomitant]
     Active Substance: CLOZAPINE

REACTIONS (1)
  - Demyelination [None]
